FAERS Safety Report 8572373-X (Version None)
Quarter: 2012Q3

REPORT INFORMATION
  Report Type: 
  Country: None (occurrence: None)
  Receive Date: 20120806
  Receipt Date: 20120802
  Transmission Date: 20120928
  Serious: Yes (Hospitalization)
  Sender: FDA-Public Use
  Company Number: US-ROCHE-1076459

PATIENT
  Sex: Male
  Weight: 63.106 kg

DRUGS (3)
  1. XELODA [Suspect]
     Indication: OESOPHAGEAL CARCINOMA
     Route: 048
     Dates: start: 20120419, end: 20120516
  2. XELODA [Suspect]
     Route: 048
     Dates: start: 20120418, end: 20120714
  3. EPIRUBICIN HYDROCHLORIDE [Suspect]
     Indication: OESOPHAGEAL CARCINOMA
     Dates: start: 20120418

REACTIONS (3)
  - DEHYDRATION [None]
  - PANCREATITIS [None]
  - DIARRHOEA [None]
